FAERS Safety Report 19378089 (Version 1)
Quarter: 2021Q2

REPORT INFORMATION
  Report Type: Spontaneous
  Country: CN (occurrence: CN)
  Receive Date: 20210604
  Receipt Date: 20210604
  Transmission Date: 20210717
  Serious: Yes (Other)
  Sender: FDA-Public Use
  Company Number: CN-BAXTER-2021BAX013943

PATIENT
  Age: 13 Year
  Sex: Male
  Weight: 42 kg

DRUGS (8)
  1. 5% GLUCOSE  INJECTION [Suspect]
     Active Substance: DEXTROSE
     Dosage: DOSE RE?INTRODUCED, 5% GS + DOXORUBICIN LIPOSOME INJECTION  ?INTRA PUMP
     Route: 050
     Dates: start: 20210509
  2. VINCRISTINE SULFATE. [Suspect]
     Active Substance: VINCRISTINE SULFATE
     Indication: MALIGNANT CONNECTIVE TISSUE NEOPLASM
     Dosage: 0.9% NS 30ML + VINCRISTINE SULFATE FOR INJECTION 2 MG
     Route: 042
     Dates: start: 20210508, end: 20210508
  3. 5% GLUCOSE  INJECTION [Suspect]
     Active Substance: DEXTROSE
     Indication: MEDICATION DILUTION
     Dosage: 5% GS 100ML + DOXORUBICIN LIPOSOME INJECTION 50 MG ?INTRA PUMP
     Route: 050
     Dates: start: 20210508, end: 20210508
  4. 0.9% SODIUM CHLORIDE INJECTION [Suspect]
     Active Substance: SODIUM CHLORIDE
     Dosage: 0.9% NS 30ML + VINCRISTINE SULFATE FOR INJECTION 2 MG
     Route: 042
     Dates: start: 20210508, end: 20210508
  5. ENDOXAN [Suspect]
     Active Substance: CYCLOPHOSPHAMIDE
     Indication: MALIGNANT CONNECTIVE TISSUE NEOPLASM
     Dosage: 0.9% NS 100ML + CYCLOPHOSPHAMIDE FOR INJECTION 1233 MG
     Route: 041
     Dates: start: 20210508, end: 20210508
  6. 0.9% SODIUM CHLORIDE INJECTION [Suspect]
     Active Substance: SODIUM CHLORIDE
     Indication: MEDICATION DILUTION
     Dosage: 0.9% NS 100ML + CYCLOPHOSPHAMIDE FOR INJECTION 1233 MG
     Route: 041
     Dates: start: 20210508, end: 20210508
  7. DOXORUBICIN HYDROCHLORIDE LIPOSOME [Suspect]
     Active Substance: DOXORUBICIN HYDROCHLORIDE
     Indication: MALIGNANT CONNECTIVE TISSUE NEOPLASM
     Dosage: 5% GS 100ML + DOXORUBICIN LIPOSOME INJECTION 50 MG? INTRA PUMP
     Route: 050
     Dates: start: 20210508, end: 20210508
  8. DOXORUBICIN HYDROCHLORIDE LIPOSOME [Suspect]
     Active Substance: DOXORUBICIN HYDROCHLORIDE
     Dosage: DOSE RE?INTRODUCED,  5% GS  + DOXORUBICIN LIPOSOME INJECTION ? INTRA PUMP
     Route: 050
     Dates: start: 20210509

REACTIONS (4)
  - Rash [Recovering/Resolving]
  - Pruritus [Recovering/Resolving]
  - Rash [Recovering/Resolving]
  - Pruritus [Recovering/Resolving]

NARRATIVE: CASE EVENT DATE: 20210508
